FAERS Safety Report 5262728-3 (Version None)
Quarter: 2007Q1

REPORT INFORMATION
  Report Type: 
  Country: None (occurrence: None)
  Receive Date: 20070312
  Receipt Date: 20070228
  Transmission Date: 20070707
  Serious: Yes (Hospitalization)
  Sender: FDA-Public Use
  Company Number: 2006UW24102

PATIENT
  Age: 41 Year
  Sex: Female
  Weight: 70.5 kg

DRUGS (1)
  1. SEROQUEL [Suspect]
     Indication: SLEEP DISORDER
     Route: 048
     Dates: start: 20040101, end: 20040101

REACTIONS (4)
  - CHOLECYSTECTOMY [None]
  - DIABETES MELLITUS NON-INSULIN-DEPENDENT [None]
  - GALLBLADDER OPERATION [None]
  - PANCREATITIS [None]
